FAERS Safety Report 11253186 (Version 2)
Quarter: 2015Q3

REPORT INFORMATION
  Report Type: Report from Study
  Country: US (occurrence: US)
  Receive Date: 20150709
  Receipt Date: 20150806
  Transmission Date: 20151125
  Serious: Yes (Hospitalization)
  Sender: FDA-Public Use
  Company Number: PHEH2015US009439

PATIENT
  Sex: Female
  Weight: 45.81 kg

DRUGS (2)
  1. GILENYA [Suspect]
     Active Substance: FINGOLIMOD HYDROCHLORIDE
     Indication: MULTIPLE SCLEROSIS
     Dosage: 0.5 MG, QD
     Route: 048
     Dates: start: 20150219
  2. BACLOFEN. [Concomitant]
     Active Substance: BACLOFEN
     Indication: PRODUCT USED FOR UNKNOWN INDICATION
     Route: 065

REACTIONS (27)
  - Memory impairment [Not Recovered/Not Resolved]
  - Pain [Unknown]
  - Frustration [Unknown]
  - Fall [Unknown]
  - Psychomotor skills impaired [Unknown]
  - Dizziness [Unknown]
  - Feeling abnormal [Not Recovered/Not Resolved]
  - Insomnia [Unknown]
  - Dysstasia [Unknown]
  - Muscle rigidity [Unknown]
  - Visual impairment [Unknown]
  - Fatigue [Unknown]
  - Disorientation [Unknown]
  - General physical health deterioration [Unknown]
  - Depression [Unknown]
  - Malaise [Not Recovered/Not Resolved]
  - Multiple sclerosis relapse [Not Recovered/Not Resolved]
  - Anxiety [Unknown]
  - Muscular weakness [Not Recovered/Not Resolved]
  - Menstruation irregular [Unknown]
  - Somnolence [Unknown]
  - Movement disorder [Unknown]
  - Tremor [Recovering/Resolving]
  - Stress [Unknown]
  - Gait disturbance [Unknown]
  - Sleep disorder [Not Recovered/Not Resolved]
  - Drug ineffective [Unknown]
